FAERS Safety Report 8383302-6 (Version None)
Quarter: 2012Q2

REPORT INFORMATION
  Report Type: 
  Country: None (occurrence: None)
  Receive Date: 20120524
  Receipt Date: 20120521
  Transmission Date: 20120825
  Serious: Yes (Hospitalization, Other)
  Sender: FDA-Public Use
  Company Number: JP-PFIZER INC-2012104095

PATIENT
  Age: 77 Year
  Sex: Male

DRUGS (6)
  1. LYRICA [Suspect]
     Indication: ANALGESIC THERAPY
  2. FLOMOX [Concomitant]
     Indication: SPONDYLITIS
     Dosage: 100 MG, 3X/DAY
     Route: 048
  3. LOXONIN [Suspect]
     Dosage: 60 MG, 3X/DAY
     Route: 048
     Dates: end: 20120416
  4. LYRICA [Suspect]
     Indication: SPONDYLITIS
     Dosage: 75 MG, 2X/DAY
     Route: 048
     Dates: start: 20120417, end: 20120418
  5. VOLTAREN [Suspect]
     Dosage: UNK
     Route: 054
     Dates: start: 20120417, end: 20120418
  6. NEUROTROPIN [Concomitant]
     Dosage: 2 DF, 2X/DAY
     Route: 048
     Dates: start: 20120127

REACTIONS (2)
  - BRAIN NEOPLASM [None]
  - CEREBRAL HAEMORRHAGE [None]
